FAERS Safety Report 8617465-1 (Version None)
Quarter: 2012Q3

REPORT INFORMATION
  Report Type: 
  Country: None (occurrence: None)
  Receive Date: 20120824
  Receipt Date: 20111025
  Transmission Date: 20120928
  Serious: No
  Sender: FDA-Public Use
  Company Number: US-ASTRAZENECA-2011SE64669

PATIENT
  Age: 57 Year
  Sex: Female

DRUGS (4)
  1. ANTIBIOTIC [Concomitant]
  2. SYMBICORT [Suspect]
     Dosage: 2 PUFFS EVERY MORNING
     Route: 055
     Dates: start: 20110401
  3. STEROIDS [Concomitant]
  4. ALBUTEROL [Concomitant]
     Dosage: BID

REACTIONS (18)
  - CHEST DISCOMFORT [None]
  - HYPOAESTHESIA [None]
  - ABDOMINAL DISTENSION [None]
  - NAUSEA [None]
  - BLOOD PRESSURE INCREASED [None]
  - PARAESTHESIA [None]
  - ENDOMETRIOSIS [None]
  - HEART RATE INCREASED [None]
  - ANXIETY [None]
  - CHEST PAIN [None]
  - PYREXIA [None]
  - HEADACHE [None]
  - HEART RATE IRREGULAR [None]
  - VOMITING [None]
  - GASTROINTESTINAL OEDEMA [None]
  - BACK PAIN [None]
  - CHILLS [None]
  - DISCOMFORT [None]
